FAERS Safety Report 8060736-0 (Version None)
Quarter: 2012Q1

REPORT INFORMATION
  Report Type: 
  Country: None (occurrence: None)
  Receive Date: 20120120
  Receipt Date: 20120106
  Transmission Date: 20120608
  Serious: Yes (Hospitalization)
  Sender: FDA-Public Use
  Company Number: US-ARROW GEN-2012-00205

PATIENT
  Sex: Male
  Weight: 102 kg

DRUGS (4)
  1. FENTANYL-100 [Suspect]
     Indication: BACK PAIN
     Dosage: ONE PATCH Q 48 HOURS AND ONE PATCH Q 72 HOURS
     Route: 062
     Dates: start: 20111219, end: 20120102
  2. FENTANYL-100 [Suspect]
     Dosage: ONE PATCH Q 48 HOURS AND ONE PATCH Q 72 HOURS
     Route: 062
     Dates: start: 20080901, end: 20111218
  3. OXYCONTIN [Concomitant]
     Indication: BACK PAIN
     Dosage: ONE TID
     Route: 048
     Dates: start: 20070101
  4. METHADONE HCL [Concomitant]
     Indication: BACK PAIN
     Dosage: ONE QD
     Route: 048
     Dates: start: 20070101

REACTIONS (2)
  - UNRESPONSIVE TO STIMULI [None]
  - ACCIDENTAL OVERDOSE [None]
